FAERS Safety Report 5887284-8 (Version None)
Quarter: 2008Q3

REPORT INFORMATION
  Report Type: 
  Country: None (occurrence: None)
  Receive Date: 20080915
  Receipt Date: 20080829
  Transmission Date: 20090109
  Serious: Yes (Hospitalization)
  Sender: FDA-Public Use
  Company Number: 2008AL010227

PATIENT
  Age: 82 Year
  Sex: Male

DRUGS (1)
  1. DIGOXIN [Suspect]
     Indication: CARDIAC DISORDER
     Dosage: 0.25 MG,DAILY, PO
     Route: 048

REACTIONS (2)
  - CARDIAC PACEMAKER MALFUNCTION [None]
  - PACEMAKER GENERATED ARRHYTHMIA [None]
